FAERS Safety Report 9596811 (Version 2)
Quarter: 2014Q1

REPORT INFORMATION
  Report Type: Spontaneous
  Country: US (occurrence: US)
  Receive Date: 20131004
  Receipt Date: 20140130
  Transmission Date: 20141002
  Serious: Yes (Hospitalization)
  Sender: FDA-Public Use
  Company Number: US-B.I. PHARMACEUTICALS,INC./RIDGEFIELD-2013-BI-31168BP

PATIENT
  Age: 62 Year
  Sex: Male
  Weight: 86.18 kg

DRUGS (11)
  1. PRADAXA [Suspect]
     Indication: ATRIAL FIBRILLATION
     Dosage: 300 MG
     Dates: start: 2011, end: 20120116
  2. NAPROXEN [Concomitant]
     Indication: PAIN
     Dosage: 1000 MG
  3. PENTASA [Concomitant]
     Dosage: 1000 MG
  4. POTASSIUM CHLORIDE [Concomitant]
     Dosage: 20 MEQ
  5. HYDROCODONE [Concomitant]
     Indication: PAIN
  6. ALPRAZOLAM [Concomitant]
     Indication: ANXIETY
     Dosage: 2 MG
     Route: 048
  7. TRIMETHOBENZAMIDE [Concomitant]
     Indication: NAUSEA
  8. MULTAQ [Concomitant]
     Dosage: 800 MG
  9. DICYCLOMINE [Concomitant]
     Dosage: 40 MG
  10. LABETALOL [Concomitant]
     Dosage: 600 MG
  11. FUROSEMIDE [Concomitant]
     Dosage: 80 MG

REACTIONS (2)
  - Upper gastrointestinal haemorrhage [Recovered/Resolved]
  - Haemorrhagic anaemia [Unknown]
